FAERS Safety Report 18343056 (Version 14)
Quarter: 2021Q3

REPORT INFORMATION
  Report Type: Report from Study
  Country: NL (occurrence: NL)
  Receive Date: 20201005
  Receipt Date: 20210721
  Transmission Date: 20211014
  Serious: Yes (Hospitalization, Other)
  Sender: FDA-Public Use
  Company Number: NL-ASPEN-GLO2020NL009620

PATIENT

DRUGS (84)
  1. MESNA. [Suspect]
     Active Substance: MESNA
     Dosage: 400 MG, TID
     Route: 042
     Dates: start: 20200912, end: 20200912
  2. VORICONAZOLE. [Concomitant]
     Active Substance: VORICONAZOLE
     Indication: PRODUCT USED FOR UNKNOWN INDICATION
     Dosage: 200 MG, BID
     Route: 042
     Dates: start: 20200825, end: 20200910
  3. VORICONAZOLE. [Concomitant]
     Active Substance: VORICONAZOLE
     Dosage: 400 MG, QD
     Route: 048
     Dates: start: 20201120, end: 20201120
  4. FENTANYL. [Concomitant]
     Active Substance: FENTANYL
     Dosage: 100 ?G, 1 DOSAGE TOTAL
     Route: 060
     Dates: start: 20201009, end: 20201009
  5. PARACETAMOL [Concomitant]
     Active Substance: ACETAMINOPHEN
     Dosage: 1000 MG, BID
     Route: 048
     Dates: start: 20200801, end: 20200817
  6. PARACETAMOL [Concomitant]
     Active Substance: ACETAMINOPHEN
     Dosage: 500 MG, 1 DOSE 4 HOURS
     Route: 042
     Dates: start: 20200916, end: 20200921
  7. PARACETAMOL [Concomitant]
     Active Substance: ACETAMINOPHEN
     Dosage: 1000 MG, 1 DOSE 12 HOURS
     Route: 042
     Dates: start: 20200801, end: 20200817
  8. PARACETAMOL [Concomitant]
     Active Substance: ACETAMINOPHEN
     Dosage: 1000 MG, TID
     Dates: start: 20201011, end: 20201027
  9. ESOMEPRAZOLE. [Concomitant]
     Active Substance: ESOMEPRAZOLE MAGNESIUM
     Dosage: 40 MG, QD
     Route: 048
     Dates: start: 20210330, end: 20210331
  10. PSYLLIUM [Concomitant]
     Active Substance: PLANTAGO SEED
     Indication: CONSTIPATION
     Dosage: 3.4 G, TID
     Route: 048
     Dates: start: 20200804, end: 20200908
  11. CEFTRIAXON [Concomitant]
     Active Substance: CEFTRIAXONE
     Indication: PRODUCT USED FOR UNKNOWN INDICATION
     Dosage: 2000 MG
     Route: 042
     Dates: start: 20201010
  12. DEXAMETHASONE. [Suspect]
     Active Substance: DEXAMETHASONE
     Dosage: 10 MG, BID
     Route: 042
     Dates: start: 20200924, end: 20201001
  13. DEXAMETHASONE. [Suspect]
     Active Substance: DEXAMETHASONE
     Dosage: 10 MG, BID
     Route: 048
     Dates: start: 20201009, end: 20201012
  14. MESNA. [Suspect]
     Active Substance: MESNA
     Indication: ACCIDENTAL EXPOSURE TO PRODUCT
     Dosage: 400 MG, TID
     Route: 042
     Dates: start: 20200910, end: 20200910
  15. FENTANYL. [Concomitant]
     Active Substance: FENTANYL
     Indication: PRODUCT USED FOR UNKNOWN INDICATION
     Dosage: 12 UG Q1HR
     Route: 062
     Dates: start: 20200813, end: 20200817
  16. PARACETAMOL [Concomitant]
     Active Substance: ACETAMINOPHEN
     Indication: PRODUCT USED FOR UNKNOWN INDICATION
     Dosage: 1000 MG, ONCE
     Route: 048
     Dates: start: 20200915, end: 20200915
  17. PARACETAMOL [Concomitant]
     Active Substance: ACETAMINOPHEN
     Dosage: 100 MG
     Route: 042
     Dates: start: 20200916, end: 20200917
  18. PARACETAMOL [Concomitant]
     Active Substance: ACETAMINOPHEN
     Dosage: 1000 MG, TID
     Route: 042
     Dates: start: 20201011, end: 20201128
  19. VALACICLOVIR [Concomitant]
     Active Substance: VALACYCLOVIR HYDROCHLORIDE
     Dosage: 500 MG, BID
     Route: 048
     Dates: start: 20200825
  20. ANIDULAFUNGIN [Concomitant]
     Active Substance: ANIDULAFUNGIN
     Dosage: 200 MG. ONCE
     Route: 065
     Dates: start: 20200902, end: 20200902
  21. CYTARABINE. [Concomitant]
     Active Substance: CYTARABINE
     Indication: PRODUCT USED FOR UNKNOWN INDICATION
     Route: 065
  22. HYPROMELLOSE [Concomitant]
     Active Substance: HYPROMELLOSES
     Indication: LACRIMATION INCREASED
     Route: 065
  23. FILGRASTIMA [Concomitant]
     Active Substance: FILGRASTIM
     Indication: PRODUCT USED FOR UNKNOWN INDICATION
     Dosage: 48000000 MCL
     Route: 058
     Dates: start: 20201012
  24. DEXAMETHASONE. [Suspect]
     Active Substance: DEXAMETHASONE
     Dosage: 10 MG, QD
     Route: 048
     Dates: start: 20201013, end: 20201016
  25. VORICONAZOLE. [Concomitant]
     Active Substance: VORICONAZOLE
     Dosage: 200 MG, BID
     Route: 042
     Dates: start: 20200819, end: 20200820
  26. PARACETAMOL [Concomitant]
     Active Substance: ACETAMINOPHEN
     Dosage: 1000 MG, BID
     Route: 048
     Dates: start: 20201008, end: 20201008
  27. PARACETAMOL [Concomitant]
     Active Substance: ACETAMINOPHEN
     Dosage: 1000 MG, ONCE
     Route: 048
     Dates: start: 20210329, end: 20210329
  28. PARACETAMOL [Concomitant]
     Active Substance: ACETAMINOPHEN
     Dosage: 1000 MG, PRN
     Route: 048
     Dates: start: 20210330
  29. ANIDULAFUNGIN [Concomitant]
     Active Substance: ANIDULAFUNGIN
     Indication: PRODUCT USED FOR UNKNOWN INDICATION
     Dosage: 100 MG, QD
     Route: 042
     Dates: start: 20200811, end: 20200908
  30. TEMAZEPAM. [Concomitant]
     Active Substance: TEMAZEPAM
     Dosage: 10 MG, 1 DOSAGE TOTAL
     Route: 048
     Dates: start: 20200918, end: 20200918
  31. IBRUTINIB [Concomitant]
     Active Substance: IBRUTINIB
     Dosage: 140 MG, QD
     Route: 048
     Dates: start: 20200825, end: 20200915
  32. CARBOPLATIN;CYTARABINE;DEXAMETHASONE;RITUXIMAB [Concomitant]
     Indication: PRODUCT USED FOR UNKNOWN INDICATION
     Dosage: UNK
     Route: 065
     Dates: start: 20200714, end: 20200717
  33. MOVICOLON [Concomitant]
     Active Substance: POLYETHYLENE GLYCOL 3350\POTASSIUM CHLORIDE\SODIUM BICARBONATE\SODIUM CHLORIDE
     Indication: PRODUCT USED FOR UNKNOWN INDICATION
     Dosage: 13.8 G, PRN
     Route: 048
     Dates: start: 20200921
  34. PLATELETS [Concomitant]
     Active Substance: HUMAN PLATELET, ALLOGENIC
     Indication: PLATELET COUNT DECREASED
     Dosage: UNK
     Route: 065
     Dates: start: 20200909, end: 20200909
  35. RASBURICASE [Concomitant]
     Active Substance: RASBURICASE
     Indication: PRODUCT USED FOR UNKNOWN INDICATION
     Dosage: 3 MG, QD
     Route: 042
     Dates: start: 20200915, end: 20200916
  36. ONDANSETRON [Concomitant]
     Active Substance: ONDANSETRON
     Indication: VOMITING
     Dosage: 8 MG, BID
     Route: 065
     Dates: start: 20200910, end: 20200915
  37. DEXAMETHASONE. [Suspect]
     Active Substance: DEXAMETHASONE
     Dosage: 10 MG, QD
     Route: 042
     Dates: start: 20200922, end: 20200923
  38. VORICONAZOLE. [Concomitant]
     Active Substance: VORICONAZOLE
     Dosage: 200 MG, BID
     Route: 042
     Dates: start: 20200825, end: 20201008
  39. IBRUTINIB [Concomitant]
     Active Substance: IBRUTINIB
     Dosage: 560 MG, QD
     Route: 048
     Dates: start: 20200813, end: 20200818
  40. METOCLOPRAMIDE. [Concomitant]
     Active Substance: METOCLOPRAMIDE
     Dosage: 10 MG, BID OR PRN
     Route: 042
     Dates: start: 20200916, end: 20200924
  41. METOCLOPRAMIDE. [Concomitant]
     Active Substance: METOCLOPRAMIDE
     Dosage: 10 MG, PRN
     Route: 048
     Dates: start: 20210331, end: 20210331
  42. ESOMEPRAZOLE. [Concomitant]
     Active Substance: ESOMEPRAZOLE MAGNESIUM
     Dosage: 40 MG, BID
     Route: 048
     Dates: start: 20200819, end: 20200819
  43. ESOMEPRAZOLE. [Concomitant]
     Active Substance: ESOMEPRAZOLE MAGNESIUM
     Dosage: 40 MG, QD
     Route: 048
     Dates: start: 20200912
  44. LACTULOSE. [Concomitant]
     Active Substance: LACTULOSE
     Dosage: 10 G, BID
     Route: 048
     Dates: start: 20200826, end: 20200909
  45. ONDANSETRON [Concomitant]
     Active Substance: ONDANSETRON
     Dosage: 8 MG, BID
     Route: 065
     Dates: start: 20200917, end: 20200917
  46. FLUDARABINE [Suspect]
     Active Substance: FLUDARABINE PHOSPHATE
     Dosage: 30 MG, ONCE
     Route: 042
     Dates: start: 20200910, end: 20200910
  47. VORICONAZOLE. [Concomitant]
     Active Substance: VORICONAZOLE
     Dosage: 200 MG, BID
     Route: 048
     Dates: start: 20200909, end: 20201010
  48. CLEMASTINE [Concomitant]
     Active Substance: CLEMASTINE
     Indication: PRODUCT USED FOR UNKNOWN INDICATION
     Dosage: 2 MG, ONCE
     Route: 042
     Dates: start: 20200915, end: 20200915
  49. CARBOPLATIN. [Concomitant]
     Active Substance: CARBOPLATIN
     Indication: PRODUCT USED FOR UNKNOWN INDICATION
     Dosage: UNK
     Route: 065
  50. PARACETAMOL [Concomitant]
     Active Substance: ACETAMINOPHEN
     Dosage: 500 MG, 1 DOSE 4 HOURS OR PRN
     Route: 048
     Dates: start: 20200921, end: 20200923
  51. PARACETAMOL [Concomitant]
     Active Substance: ACETAMINOPHEN
     Dosage: 1000 MG, QID OR AS NEEDED
     Route: 048
     Dates: start: 20201009, end: 20201011
  52. TEMAZEPAM. [Concomitant]
     Active Substance: TEMAZEPAM
     Dosage: 10 MG, BID
     Route: 048
     Dates: start: 20200918, end: 20200924
  53. RITUXIMAB. [Concomitant]
     Active Substance: RITUXIMAB
     Indication: PRODUCT USED FOR UNKNOWN INDICATION
     Dosage: UNK
     Route: 065
     Dates: start: 20200714, end: 20200717
  54. METOCLOPRAMIDE. [Concomitant]
     Active Substance: METOCLOPRAMIDE
     Dosage: 10 MG, BID
     Route: 048
     Dates: start: 20201009, end: 20201010
  55. VORICONAZOLE. [Concomitant]
     Active Substance: VORICONAZOLE
     Dosage: 500 MG, BID
     Route: 042
     Dates: start: 20200909
  56. PARACETAMOL [Concomitant]
     Active Substance: ACETAMINOPHEN
     Dosage: 1000 MG, SINGLE
     Route: 048
     Dates: start: 20200922, end: 20200922
  57. PARACETAMOL [Concomitant]
     Active Substance: ACETAMINOPHEN
     Dosage: 1000 MG, TID
     Route: 042
     Dates: start: 20201009, end: 20201009
  58. ANIDULAFUNGIN [Concomitant]
     Active Substance: ANIDULAFUNGIN
     Dosage: 200 MG. ONCE
     Route: 065
  59. ANIDULAFUNGIN [Concomitant]
     Active Substance: ANIDULAFUNGIN
     Dosage: 100 MG, QD
     Route: 042
     Dates: start: 20200909, end: 20201010
  60. IBRUTINIB [Concomitant]
     Active Substance: IBRUTINIB
     Indication: PRODUCT USED FOR UNKNOWN INDICATION
     Dosage: 140 MG, QD
     Route: 048
     Dates: start: 20200819, end: 20200826
  61. MOVICOLON [Concomitant]
     Active Substance: POLYETHYLENE GLYCOL 3350\POTASSIUM CHLORIDE\SODIUM BICARBONATE\SODIUM CHLORIDE
     Dosage: 13.8 MG, BID
     Route: 048
     Dates: start: 20201009, end: 20201010
  62. FUROSEMIDE. [Concomitant]
     Active Substance: FUROSEMIDE
     Indication: FLUID RETENTION
     Dosage: 20 MG, BID
     Route: 065
     Dates: start: 20200920, end: 20200921
  63. FUROSEMIDE. [Concomitant]
     Active Substance: FUROSEMIDE
     Dosage: QD
     Route: 065
     Dates: start: 20200910, end: 20200911
  64. ESOMEPRAZOLE. [Concomitant]
     Active Substance: ESOMEPRAZOLE MAGNESIUM
     Indication: PRODUCT USED FOR UNKNOWN INDICATION
     Dosage: 40 MG, BID
     Route: 048
     Dates: start: 20200902, end: 20200911
  65. NORADRENALIN [Concomitant]
     Active Substance: NOREPINEPHRINE\NOREPINEPHRINE BITARTRATE
     Indication: PRODUCT USED FOR UNKNOWN INDICATION
     Dosage: 0.2 UG/KG /MIN
     Route: 042
     Dates: start: 20201009, end: 20201010
  66. AMFOTERICINA B [Concomitant]
     Active Substance: AMPHOTERICIN B
     Indication: PRODUCT USED FOR UNKNOWN INDICATION
     Dosage: 250 MG, QD
     Route: 042
     Dates: start: 20201010
  67. DEXAMETHASONE. [Suspect]
     Active Substance: DEXAMETHASONE
     Indication: PRODUCT USED FOR UNKNOWN INDICATION
     Dosage: 40 MG, QD
     Route: 048
     Dates: start: 20200902, end: 20200904
  68. FLUDARABINE [Suspect]
     Active Substance: FLUDARABINE PHOSPHATE
     Indication: PRODUCT USED FOR UNKNOWN INDICATION
     Dosage: 30 MG, ONCE
     Route: 042
     Dates: start: 20200912, end: 20200912
  69. FUROSEMIDE. [Concomitant]
     Active Substance: FUROSEMIDE
     Dosage: 20 MG, SINGLE
     Route: 042
     Dates: start: 20200912, end: 20200912
  70. COTRIMOXAZOL [Concomitant]
     Active Substance: SULFAMETHOXAZOLE\TRIMETHOPRIM
     Indication: PRODUCT USED FOR UNKNOWN INDICATION
     Dosage: 480 MG, QD
     Route: 048
     Dates: start: 20200915
  71. DEXAMETHASONE. [Suspect]
     Active Substance: DEXAMETHASONE
     Dosage: 10 MG, QID
     Route: 048
     Dates: start: 20201001, end: 20201008
  72. DEXAMETHASONE. [Suspect]
     Active Substance: DEXAMETHASONE
     Dosage: 7.5 MG, QD
     Route: 048
     Dates: start: 20201017, end: 20201019
  73. CYCLOPHOSPHAMIDE. [Suspect]
     Active Substance: CYCLOPHOSPHAMIDE
     Indication: PRODUCT USED FOR UNKNOWN INDICATION
     Dosage: 1040 MG, QD
     Route: 042
     Dates: start: 20200911, end: 20200912
  74. CYCLOPHOSPHAMIDE. [Suspect]
     Active Substance: CYCLOPHOSPHAMIDE
     Dosage: 300 MG; 6 X 50
     Route: 048
     Dates: start: 20201106, end: 20201106
  75. MESNA. [Suspect]
     Active Substance: MESNA
     Dosage: 1600 MG, BID
     Route: 048
     Dates: start: 20201106, end: 20201108
  76. VORICONAZOLE. [Concomitant]
     Active Substance: VORICONAZOLE
     Dosage: 338.8 MG, BID
     Route: 042
     Dates: start: 20200811, end: 20200819
  77. FENTANYL. [Concomitant]
     Active Substance: FENTANYL
     Dosage: 100 MG, TID PRN
     Route: 060
     Dates: start: 20201207, end: 20210104
  78. VALACICLOVIR [Concomitant]
     Active Substance: VALACYCLOVIR HYDROCHLORIDE
     Indication: PRODUCT USED FOR UNKNOWN INDICATION
     Dosage: 500 MG, BID
     Route: 048
     Dates: start: 20200825, end: 20200910
  79. ANIDULAFUNGIN [Concomitant]
     Active Substance: ANIDULAFUNGIN
     Dosage: 200 MG
     Route: 042
     Dates: start: 20200902, end: 20200902
  80. TEMAZEPAM. [Concomitant]
     Active Substance: TEMAZEPAM
     Indication: PRODUCT USED FOR UNKNOWN INDICATION
     Dosage: 10 MG, ONCE
     Route: 048
     Dates: start: 20200914, end: 20200914
  81. METOCLOPRAMIDE. [Concomitant]
     Active Substance: METOCLOPRAMIDE
     Indication: VOMITING
     Dosage: 10 MG, UNK
     Route: 042
     Dates: start: 20200911, end: 20200911
  82. METOCLOPRAMIDE. [Concomitant]
     Active Substance: METOCLOPRAMIDE
     Dosage: 10 MG, PRN
     Route: 042
     Dates: start: 20201113
  83. METOCLOPRAMIDE. [Concomitant]
     Active Substance: METOCLOPRAMIDE
     Dosage: 10 MG, ONCE
     Route: 042
     Dates: start: 20210331, end: 20210331
  84. LACTULOSE. [Concomitant]
     Active Substance: LACTULOSE
     Indication: CONSTIPATION
     Dosage: 10 G, BID
     Route: 048
     Dates: start: 20200915, end: 20200917

REACTIONS (23)
  - Haemophagocytic lymphohistiocytosis [Recovered/Resolved]
  - Tremor [Recovered/Resolved]
  - Parainfluenzae virus infection [Not Recovered/Not Resolved]
  - Pyrexia [Recovered/Resolved]
  - Delirium [Not Recovered/Not Resolved]
  - C-reactive protein increased [Not Recovered/Not Resolved]
  - Constipation [Recovered/Resolved]
  - Cough [Not Recovered/Not Resolved]
  - Aphasia [Recovered/Resolved]
  - Fall [Recovered/Resolved]
  - Balance disorder [Recovered/Resolved]
  - Accidental exposure to product [Recovered/Resolved]
  - Neutropenic sepsis [Recovered/Resolved]
  - Lacrimation increased [Recovered/Resolved]
  - Infection [Unknown]
  - Lacrimation increased [Recovered/Resolved]
  - Nausea [Recovered/Resolved]
  - Abnormal faeces [Not Recovered/Not Resolved]
  - Confusional state [Not Recovered/Not Resolved]
  - Cytokine release syndrome [Recovered/Resolved]
  - Fluid retention [Recovered/Resolved]
  - Vomiting [Not Recovered/Not Resolved]
  - Rhinovirus infection [Not Recovered/Not Resolved]

NARRATIVE: CASE EVENT DATE: 20200811
